FAERS Safety Report 8142900 (Version 8)
Quarter: 2014Q1

REPORT INFORMATION
  Report Type: Report from Study
  Country: DE (occurrence: DE)
  Receive Date: 20110919
  Receipt Date: 20140228
  Transmission Date: 20141002
  Serious: Yes (Other)
  Sender: FDA-Public Use
  Company Number: DE-UCBSA-039047

PATIENT
  Sex: Female

DRUGS (21)
  1. CERTOLIZUMAB PEGOL [Suspect]
     Indication: RHEUMATOID ARTHRITIS
     Dosage: 200 MG
     Route: 058
     Dates: start: 20110224, end: 20120112
  2. ARAVA [Concomitant]
     Indication: RHEUMATOID ARTHRITIS
     Dates: start: 200912, end: 20111026
  3. ARAVA [Concomitant]
     Indication: RHEUMATOID ARTHRITIS
     Dates: start: 20111026
  4. CHOLECALCIFEROL [Concomitant]
     Dates: start: 20110224
  5. IRBESARTAN [Concomitant]
     Indication: HYPERTENSION
     Dates: start: 20110216, end: 20110224
  6. IRBESARTAN [Concomitant]
     Indication: HYPERTENSION
     Dates: start: 20110225
  7. MAGNESIUM [Concomitant]
     Indication: MUSCLE SPASMS
     Dates: start: 20110222
  8. PANTOZOL [Concomitant]
     Indication: PROPHYLAXIS
     Dates: start: 20110216, end: 20110228
  9. DICLOFENAC [Concomitant]
     Indication: PAIN
     Dosage: 75 MG : EVERY DAY AFTERNOON
     Dates: start: 20110215, end: 20110225
  10. DICLOFENAC [Concomitant]
     Indication: PAIN
     Dates: start: 201104
  11. PREDNISOLON [Concomitant]
     Indication: RHEUMATOID ARTHRITIS
     Dates: start: 20090514, end: 201102
  12. PREDNISOLON [Concomitant]
     Indication: RHEUMATOID ARTHRITIS
     Dates: start: 20110215, end: 20110215
  13. PREDNISOLON [Concomitant]
     Indication: RHEUMATOID ARTHRITIS
     Dates: start: 20110216, end: 20110218
  14. PREDNISOLON [Concomitant]
     Indication: RHEUMATOID ARTHRITIS
     Dates: start: 20110219, end: 20110225
  15. PREDNISOLON [Concomitant]
     Indication: RHEUMATOID ARTHRITIS
     Dates: start: 20110226, end: 20110314
  16. PREDNISOLON [Concomitant]
     Indication: RHEUMATOID ARTHRITIS
     Dates: start: 20110315, end: 20110327
  17. PREDNISOLON [Concomitant]
     Indication: RHEUMATOID ARTHRITIS
     Dates: start: 20110328, end: 20110404
  18. PREDNISOLON [Concomitant]
     Indication: RHEUMATOID ARTHRITIS
     Dates: start: 20110405, end: 20110417
  19. PREDNISOLON [Concomitant]
     Indication: RHEUMATOID ARTHRITIS
     Dates: start: 20110418, end: 20110516
  20. PREDNISOLON [Concomitant]
     Indication: RHEUMATOID ARTHRITIS
     Dates: start: 20110517
  21. PNEUMOCOCCAL VACCINE [Concomitant]
     Dates: start: 20110223

REACTIONS (1)
  - Hypertensive crisis [Recovered/Resolved]
